FAERS Safety Report 23342880 (Version 1)
Quarter: 2023Q4

REPORT INFORMATION
  Report Type: Spontaneous
  Country: US (occurrence: None)
  Receive Date: 20231226
  Receipt Date: 20231226
  Transmission Date: 20240110
  Serious: Yes (Hospitalization)
  Sender: FDA-Public Use
  Company Number: None

PATIENT
  Sex: Female

DRUGS (3)
  1. OPSUMIT [Suspect]
     Active Substance: MACITENTAN
     Indication: Pulmonary arterial hypertension
     Dosage: 10MG DAILY PO
     Route: 048
     Dates: start: 202207
  2. ADEMPAS [Concomitant]
     Active Substance: RIOCIGUAT
  3. C-TREPROSTINIL [Concomitant]

REACTIONS (2)
  - Haemorrhage [None]
  - Gastrointestinal disorder [None]

NARRATIVE: CASE EVENT DATE: 20231222
